FAERS Safety Report 6574352-0 (Version None)
Quarter: 2010Q1

REPORT INFORMATION
  Report Type: 
  Country: None (occurrence: None)
  Receive Date: 20100201
  Receipt Date: 20100122
  Transmission Date: 20100710
  Serious: Yes (Hospitalization, Disabling)
  Sender: FDA-Public Use
  Company Number: WAES 0909USAO1882

PATIENT
  Age: 73 Year
  Sex: Female

DRUGS (6)
  1. ZETIA [Suspect]
     Indication: HYPERCHOLESTEROLAEMIA
     Dosage: 10 MG/DAILY, PO
     Route: 048
     Dates: start: 20080729, end: 20080819
  2. AMLODIPINE BESYLATE [Concomitant]
  3. GLYBURIDE [Concomitant]
  4. PIOGLITAZONE HYDROCHLORIDE [Concomitant]
  5. PITAVASTATIN CALCIUM [Concomitant]
  6. VOGLIBOSE [Concomitant]

REACTIONS (1)
  - CEREBRAL INFARCTION [None]
